FAERS Safety Report 24410267 (Version 1)
Quarter: 2024Q4

REPORT INFORMATION
  Report Type: Spontaneous
  Country: US (occurrence: US)
  Receive Date: 20241008
  Receipt Date: 20241008
  Transmission Date: 20250115
  Serious: Yes (Other)
  Sender: VIIV
  Company Number: US-VIIV HEALTHCARE ULC-US2024121498

PATIENT

DRUGS (3)
  1. CABOTEGRAVIR [Suspect]
     Active Substance: CABOTEGRAVIR
     Indication: HIV test
     Dosage: UNK, SINGLE-DOSE VIAL OF 600 MG/3 ML
     Dates: start: 20240909
  2. CABOTEGRAVIR [Suspect]
     Active Substance: CABOTEGRAVIR
  3. CABOTEGRAVIR [Suspect]
     Active Substance: CABOTEGRAVIR

REACTIONS (2)
  - Surgery [Unknown]
  - Epistaxis [Not Recovered/Not Resolved]

NARRATIVE: CASE EVENT DATE: 20241001
